FAERS Safety Report 5691709-0 (Version None)
Quarter: 2008Q2

REPORT INFORMATION
  Report Type: 
  Country: None (occurrence: None)
  Receive Date: 20080402
  Receipt Date: 20080325
  Transmission Date: 20081010
  Serious: Yes (Death)
  Sender: FDA-Public Use
  Company Number: GB-TEVA-169248ISR

PATIENT
  Age: 46 Year
  Sex: Male

DRUGS (1)
  1. LISINOPRIL [Suspect]

REACTIONS (2)
  - COMPLETED SUICIDE [None]
  - OVERDOSE [None]
